FAERS Safety Report 13628444 (Version 1)
Quarter: 2017Q2

REPORT INFORMATION
  Report Type: Spontaneous
  Country: US (occurrence: US)
  Receive Date: 20170607
  Receipt Date: 20170607
  Transmission Date: 20170830
  Serious: No
  Sender: FDA-Public Use
  Company Number: US-TARO-2017TAR00013

PATIENT
  Age: 3 Year
  Sex: Female
  Weight: 10.88 kg

DRUGS (2)
  1. MULTIVITAMIN [Concomitant]
     Active Substance: VITAMINS
  2. CETIRIZINE HCL [Suspect]
     Active Substance: CETIRIZINE HYDROCHLORIDE
     Indication: MULTIPLE ALLERGIES
     Dosage: 2.5 ML, AS NEEDED
     Route: 048
     Dates: start: 201701

REACTIONS (4)
  - Heart rate abnormal [Recovered/Resolved]
  - Product substitution issue [Not Recovered/Not Resolved]
  - Hallucination [Recovered/Resolved]
  - Sleep terror [Recovered/Resolved]

NARRATIVE: CASE EVENT DATE: 2016
